FAERS Safety Report 18637888 (Version 1)
Quarter: 2020Q4

REPORT INFORMATION
  Report Type: Spontaneous
  Country: GB (occurrence: GB)
  Receive Date: 20201219
  Receipt Date: 20201219
  Transmission Date: 20210114
  Serious: Yes (Disabling, Other)
  Sender: FDA-Public Use
  Company Number: GB-ABBVIE-20P-167-3699599-00

PATIENT
  Age: 77 Year
  Sex: Male
  Weight: 94 kg

DRUGS (6)
  1. OMEPRAZOLE. [Concomitant]
     Active Substance: OMEPRAZOLE
     Indication: PRODUCT USED FOR UNKNOWN INDICATION
     Dosage: UNK
  2. METOPROLOL TARTRATE. [Concomitant]
     Active Substance: METOPROLOL TARTRATE
     Indication: PRODUCT USED FOR UNKNOWN INDICATION
     Dosage: UNK
  3. RIVAROXABAN [Concomitant]
     Active Substance: RIVAROXABAN
     Indication: PRODUCT USED FOR UNKNOWN INDICATION
     Dosage: UNK
  4. PROSTAP SR DEPOT [Suspect]
     Active Substance: LEUPROLIDE ACETATE
     Indication: NEOPLASM PROSTATE
     Dosage: UNK UNK, Q3MONTHS
     Route: 051
     Dates: start: 20200611
  5. ALLOPURINOL. [Concomitant]
     Active Substance: ALLOPURINOL
     Indication: PRODUCT USED FOR UNKNOWN INDICATION
     Dosage: UNK
  6. LISINOPRIL. [Concomitant]
     Active Substance: LISINOPRIL
     Indication: PRODUCT USED FOR UNKNOWN INDICATION
     Dosage: UNK

REACTIONS (9)
  - Condition aggravated [Recovering/Resolving]
  - Cardiac output decreased [Recovering/Resolving]
  - Asthenia [Unknown]
  - Left ventricular failure [Unknown]
  - Abnormal weight gain [Recovered/Resolved]
  - Abdominal distension [Unknown]
  - Fluid retention [Recovering/Resolving]
  - Peripheral swelling [Unknown]
  - Dyspnoea [Unknown]

NARRATIVE: CASE EVENT DATE: 2020
